FAERS Safety Report 7405241-7 (Version None)
Quarter: 2011Q2

REPORT INFORMATION
  Report Type: 
  Country: None (occurrence: None)
  Receive Date: 20110411
  Receipt Date: 20110303
  Transmission Date: 20111010
  Serious: Yes (Life-Threatening, Hospitalization)
  Sender: FDA-Public Use
  Company Number: US-BAYER-201035981NA

PATIENT
  Age: 24 Year
  Sex: Female
  Weight: 87.528 kg

DRUGS (8)
  1. ALBUTEROL [Concomitant]
  2. HYDROCODONE BITARTRATE AND ACETAMINOPHEN [Concomitant]
     Dosage: UNK
     Dates: start: 20081029
  3. ACETAMINOPHEN + COD. PHOSP. [Concomitant]
     Dosage: UNK
     Route: 048
     Dates: start: 20081015
  4. YAZ [Suspect]
     Indication: MENSTRUATION IRREGULAR
     Dosage: UNK
     Route: 048
     Dates: start: 20080501, end: 20080801
  5. MUCINEX DM [Concomitant]
     Dosage: UNK
     Route: 048
     Dates: start: 20081219
  6. CLARINEX [Concomitant]
     Dosage: 5 MG, UNK
     Route: 048
  7. AMOXICILLIN [Concomitant]
     Dosage: 500 MG, UNK
     Route: 048
     Dates: start: 20081015, end: 20081021
  8. AZITHROMYCIN [Concomitant]
     Dosage: 500 MG, UNK
     Route: 048

REACTIONS (6)
  - PAIN [None]
  - CHOLECYSTITIS CHRONIC [None]
  - GALLBLADDER DISORDER [None]
  - CHOLELITHIASIS [None]
  - FAT INTOLERANCE [None]
  - NAUSEA [None]
